FAERS Safety Report 10442530 (Version 1)
Quarter: 2014Q3

REPORT INFORMATION
  Report Type: Spontaneous
  Country: JP (occurrence: JP)
  Receive Date: 20140909
  Receipt Date: 20140909
  Transmission Date: 20150326
  Serious: No
  Sender: FDA-Public Use
  Company Number: PHHY2013JP161923

PATIENT
  Sex: Female

DRUGS (3)
  1. TASIGNA [Suspect]
     Active Substance: NILOTINIB
     Dosage: 600 MG, DAILY
  2. TASIGNA [Suspect]
     Active Substance: NILOTINIB
     Dosage: UNK UKN, UNK
  3. TASIGNA [Suspect]
     Active Substance: NILOTINIB
     Indication: CHRONIC MYELOID LEUKAEMIA
     Dosage: 600 MG, DAILY
     Dates: start: 20131015

REACTIONS (2)
  - Electrocardiogram QT prolonged [Unknown]
  - Nasopharyngitis [Unknown]
